FAERS Safety Report 6164830-0 (Version None)
Quarter: 2009Q2

REPORT INFORMATION
  Report Type: 
  Country: None (occurrence: None)
  Receive Date: 20090423
  Receipt Date: 20090415
  Transmission Date: 20091009
  Serious: Yes (Hospitalization)
  Sender: FDA-Public Use
  Company Number: PHHY2009GB07714

PATIENT
  Sex: Male

DRUGS (7)
  1. CLOZARIL [Suspect]
     Indication: SCHIZOPHRENIA
     Dosage: UNK
     Route: 048
     Dates: start: 20090120
  2. MIRTAZAPINE [Concomitant]
     Indication: DEPRESSION
  3. EPILIM [Concomitant]
     Dosage: 300 MG, BID
     Route: 065
  4. DIAZEPAM [Concomitant]
     Dosage: 2 MG, BID
  5. BECLOFORTE [Concomitant]
  6. VENTOLIN [Concomitant]
  7. OLANZAPINE [Concomitant]

REACTIONS (4)
  - ASTHMA [None]
  - DIABETES MELLITUS [None]
  - MALAISE [None]
  - PNEUMONIA [None]
